FAERS Safety Report 24550825 (Version 2)
Quarter: 2024Q4

REPORT INFORMATION
  Report Type: Spontaneous
  Country: US (occurrence: US)
  Receive Date: 20241025
  Receipt Date: 20241127
  Transmission Date: 20250115
  Serious: Yes (Other)
  Sender: CALLIDITAS THERAPEUTICS AB
  Company Number: US-Calliditas-2024CAL02380

PATIENT
  Age: 60 Year
  Sex: Male

DRUGS (5)
  1. TARPEYO [Suspect]
     Active Substance: BUDESONIDE
     Indication: IgA nephropathy
     Route: 048
     Dates: start: 202403, end: 20241018
  2. TORSEMIDE [Concomitant]
     Active Substance: TORSEMIDE
  3. AMLODIPINE [Concomitant]
     Active Substance: AMLODIPINE BESYLATE
  4. ASPIRIN [Concomitant]
     Active Substance: ASPIRIN
  5. ATORVASTATIN [Concomitant]
     Active Substance: ATORVASTATIN

REACTIONS (10)
  - Diabetes mellitus [Recovering/Resolving]
  - Visual impairment [Unknown]
  - Therapeutic response unexpected [Unknown]
  - Myopathy [Recovering/Resolving]
  - Acne [Recovering/Resolving]
  - Cushingoid [Recovering/Resolving]
  - Lipohypertrophy [Recovering/Resolving]
  - Fatigue [Recovering/Resolving]
  - Proteinuria [Recovering/Resolving]
  - Diarrhoea [Recovering/Resolving]

NARRATIVE: CASE EVENT DATE: 20240301
